FAERS Safety Report 13695497 (Version 1)
Quarter: 2017Q2

REPORT INFORMATION
  Report Type: Spontaneous
  Country: GR (occurrence: GR)
  Receive Date: 20170627
  Receipt Date: 20170627
  Transmission Date: 20170830
  Serious: Yes (Other)
  Sender: FDA-Public Use
  Company Number: GR-CELGENEUS-GRC-20170605606

PATIENT
  Age: 42 Year
  Sex: Male

DRUGS (1)
  1. OTEZLA [Suspect]
     Active Substance: APREMILAST
     Indication: PSORIASIS
     Dosage: 60 MILLIGRAM
     Route: 048
     Dates: start: 201610, end: 20170615

REACTIONS (3)
  - Depressed mood [Not Recovered/Not Resolved]
  - Mood altered [Not Recovered/Not Resolved]
  - Negative thoughts [Not Recovered/Not Resolved]

NARRATIVE: CASE EVENT DATE: 201705
